FAERS Safety Report 6923232-7 (Version None)
Quarter: 2010Q3

REPORT INFORMATION
  Report Type: 
  Country: None (occurrence: None)
  Receive Date: 20100813
  Receipt Date: 20100803
  Transmission Date: 20110219
  Serious: Yes (Death, Other)
  Sender: FDA-Public Use
  Company Number: JP-PFIZER INC-2010101631

PATIENT
  Age: 33 Year
  Sex: Male

DRUGS (9)
  1. METHYLPREDNISOLONE SODIUM SUCCINATE [Suspect]
     Indication: GRAFT VERSUS HOST DISEASE
     Dosage: 2 MG/KG, UNK
     Route: 042
  2. MYCOPHENOLATE MOFETIL [Suspect]
     Indication: GRAFT VERSUS HOST DISEASE
     Dosage: 500MG PER DAY
     Route: 048
  3. TACROLIMUS [Suspect]
     Indication: GRAFT VERSUS HOST DISEASE
  4. METHOTREXATE [Concomitant]
     Indication: PROPHYLAXIS AGAINST GRAFT VERSUS HOST DISEASE
  5. BUSULFAN [Concomitant]
     Indication: PREOPERATIVE CARE
  6. CYCLOPHOSPHAMIDE [Concomitant]
  7. TRIMETHOPRIM [Concomitant]
     Indication: PROPHYLAXIS
     Dosage: 240MG, THREE TIMES A WEEK
  8. SULFAMETHOXAZOLE [Concomitant]
     Indication: PROPHYLAXIS
     Dosage: 1200 MG, THREE TIMES A WEEK
  9. POLYGAM S/D [Concomitant]

REACTIONS (1)
  - BACTERIAL SEPSIS [None]
